FAERS Safety Report 8791429 (Version 1)
Quarter: 2012Q4

REPORT INFORMATION
  Report Type: Spontaneous
  Country: SG (occurrence: None)
  Receive Date: 20120912
  Receipt Date: 20120912
  Transmission Date: 20130627
  Serious: Yes (Hospitalization, Other)
  Sender: FDA-Public Use
  Company Number: 2012MA010709

PATIENT
  Age: 40 Year
  Sex: Male

DRUGS (1)
  1. GEMCITABINE HYDROCHLORIDE [Suspect]
     Indication: PANCREATIC ADENOCARCINOMA METASTATIC

REACTIONS (7)
  - Nausea [None]
  - Vomiting [None]
  - Blood potassium increased [None]
  - Tumour lysis syndrome [None]
  - Haemolytic uraemic syndrome [None]
  - Tachycardia [None]
  - Haemodialysis [None]
